FAERS Safety Report 4357489-6 (Version None)
Quarter: 2004Q2

REPORT INFORMATION
  Report Type: 
  Country: None (occurrence: None)
  Receive Date: 20040507
  Receipt Date: 20040426
  Transmission Date: 20050107
  Serious: Yes (Hospitalization, Other)
  Sender: FDA-Public Use
  Company Number: HQWYE596026APR04

PATIENT
  Age: 28 Year
  Sex: Female

DRUGS (2)
  1. TRIQUILAR-21 (LEVONORGESTREL/ETHINYL ESTRADIOL, TABLET) [Suspect]
     Dosage: ORAL
     Route: 048
     Dates: start: 20021111, end: 20031227
  2. GASMOTIN (MOSAPRIDE CITRATE, GAS) [Suspect]

REACTIONS (8)
  - ALANINE AMINOTRANSFERASE INCREASED [None]
  - ASPARTATE AMINOTRANSFERASE INCREASED [None]
  - CONDITION AGGRAVATED [None]
  - JAUNDICE [None]
  - LIVER DISORDER [None]
  - LIVER FUNCTION TEST ABNORMAL [None]
  - LYMPHOCYTE STIMULATION TEST POSITIVE [None]
  - NASOPHARYNGITIS [None]
